FAERS Safety Report 5900432-6 (Version None)
Quarter: 2008Q3

REPORT INFORMATION
  Report Type: 
  Country: None (occurrence: None)
  Receive Date: 20080926
  Receipt Date: 20080917
  Transmission Date: 20090109
  Serious: Yes (Other)
  Sender: FDA-Public Use
  Company Number: US-PFIZER INC-2008052840

PATIENT
  Sex: Female

DRUGS (4)
  1. CELEBREX [Suspect]
     Indication: ARTHRITIS
     Route: 048
  2. NORVASC [Suspect]
     Route: 048
  3. SYNTHROID [Concomitant]
  4. ZOLOFT [Concomitant]

REACTIONS (7)
  - CONVULSION [None]
  - GRANULOMA [None]
  - ISCHAEMIA [None]
  - LYME DISEASE [None]
  - MIGRAINE [None]
  - MYOCARDIAL INFARCTION [None]
  - VASCULITIS [None]
